FAERS Safety Report 8997545 (Version 1)
Quarter: 2013Q1

REPORT INFORMATION
  Report Type: Spontaneous
  Country: US (occurrence: US)
  Receive Date: 20130104
  Receipt Date: 20130104
  Transmission Date: 20140127
  Serious: Yes (Life-Threatening, Other)
  Sender: FDA-Public Use
  Company Number: US-009507513-00082532

PATIENT
  Age: 59 Year
  Sex: Male

DRUGS (5)
  1. SINGULAIR [Suspect]
     Dosage: 1 UNK, QD
     Route: 048
  2. RAXAR [Suspect]
     Dosage: UNK UNK, BID
  3. ATROVENT [Concomitant]
  4. ALBUTEROL [Concomitant]
  5. MUCOMYST [Concomitant]

REACTIONS (4)
  - Angina pectoris [Unknown]
  - Dyspnoea [Unknown]
  - Myalgia [Unknown]
  - Palpitations [Unknown]
